FAERS Safety Report 9580674 (Version 1)
Quarter: 2013Q3

REPORT INFORMATION
  Report Type: Spontaneous
  Country: FR (occurrence: None)
  Receive Date: 20130916
  Receipt Date: 20130916
  Transmission Date: 20140515
  Serious: Yes (Other)
  Sender: FDA-Public Use
  Company Number: JPI-P-033770

PATIENT
  Age: 32 Year
  Sex: Female

DRUGS (1)
  1. XYREM [Suspect]
     Indication: PRODUCT USED FOR UNKNOWN INDICATION
     Route: 048
     Dates: end: 201306

REACTIONS (7)
  - Suicidal ideation [None]
  - Vertigo [None]
  - Decreased appetite [None]
  - Anxiety [None]
  - Nausea [None]
  - Tremor [None]
  - Headache [None]
